FAERS Safety Report 14220921 (Version 2)
Quarter: 2018Q2

REPORT INFORMATION
  Report Type: Spontaneous
  Country: US (occurrence: US)
  Receive Date: 20171124
  Receipt Date: 20180615
  Transmission Date: 20180711
  Serious: Yes (Other)
  Sender: FDA-Public Use
  Company Number: US-ASTRAZENECA-2017SF17347

PATIENT
  Age: 17445 Day
  Sex: Female

DRUGS (22)
  1. OMEPRAZOLE. [Suspect]
     Active Substance: OMEPRAZOLE
     Indication: GASTROOESOPHAGEAL REFLUX DISEASE
     Dosage: GENERIC
     Route: 065
     Dates: start: 20120220
  2. DEXILANT [Suspect]
     Active Substance: DEXLANSOPRAZOLE
     Indication: PEPTIC ULCER
     Route: 065
     Dates: start: 201205, end: 201207
  3. PANTOPRAZOLE [Suspect]
     Active Substance: PANTOPRAZOLE
     Indication: GASTROOESOPHAGEAL REFLUX DISEASE
     Route: 065
  4. METHYLPREDNISOLONE. [Concomitant]
     Active Substance: METHYLPREDNISOLONE
     Indication: HYPERSENSITIVITY
     Dates: start: 2010
  5. LEVOCETIRIZINE [Concomitant]
     Active Substance: LEVOCETIRIZINE
     Indication: URTICARIA
     Dates: start: 2010
  6. TAGAMET HB [Concomitant]
     Active Substance: CIMETIDINE
     Dates: start: 2009, end: 2012
  7. NEXIUM 24HR [Suspect]
     Active Substance: ESOMEPRAZOLE MAGNESIUM
     Indication: PEPTIC ULCER
     Route: 048
     Dates: start: 201408, end: 201411
  8. DEXILANT [Suspect]
     Active Substance: DEXLANSOPRAZOLE
     Indication: PEPTIC ULCER
     Route: 065
     Dates: start: 20120518, end: 20120710
  9. LEVOCETIRIZINE [Concomitant]
     Active Substance: LEVOCETIRIZINE
     Indication: PYREXIA
     Dates: start: 2010
  10. TUMS [Concomitant]
     Active Substance: CALCIUM CARBONATE
     Dates: start: 2009, end: 2011
  11. NEXIUM 24HR [Suspect]
     Active Substance: ESOMEPRAZOLE MAGNESIUM
     Indication: GASTROOESOPHAGEAL REFLUX DISEASE
     Route: 048
     Dates: start: 201408, end: 201411
  12. DEXILANT [Suspect]
     Active Substance: DEXLANSOPRAZOLE
     Indication: GASTROOESOPHAGEAL REFLUX DISEASE
     Route: 065
     Dates: start: 201205, end: 201207
  13. ALPRAZOLAM. [Concomitant]
     Active Substance: ALPRAZOLAM
     Indication: ANXIETY
     Dates: start: 2010
  14. TIZANIDINE. [Concomitant]
     Active Substance: TIZANIDINE
     Indication: MUSCLE SPASMS
     Dates: start: 2010
  15. PRAVASTATIN. [Concomitant]
     Active Substance: PRAVASTATIN
     Indication: BLOOD CHOLESTEROL INCREASED
     Dates: start: 2010
  16. PEPCID AC [Concomitant]
     Active Substance: FAMOTIDINE
     Dates: start: 2009, end: 2012
  17. DEXILANT [Suspect]
     Active Substance: DEXLANSOPRAZOLE
     Indication: GASTROOESOPHAGEAL REFLUX DISEASE
     Route: 065
     Dates: start: 20120518, end: 20120710
  18. LISINOPRIL. [Concomitant]
     Active Substance: LISINOPRIL
     Indication: HYPERTENSION
     Dates: start: 2010
  19. ZANTAC [Concomitant]
     Active Substance: RANITIDINE HYDROCHLORIDE
     Dates: start: 2009, end: 2012
  20. BENZONATATE. [Concomitant]
     Active Substance: BENZONATATE
     Indication: COUGH
     Dates: start: 2010
  21. METHYLPREDNISOLONE. [Concomitant]
     Active Substance: METHYLPREDNISOLONE
     Indication: INFLAMMATION
     Dates: start: 2010
  22. NAPROXEN. [Concomitant]
     Active Substance: NAPROXEN
     Indication: ANALGESIC THERAPY
     Dates: start: 2010

REACTIONS (1)
  - Acute kidney injury [Unknown]

NARRATIVE: CASE EVENT DATE: 20141118
